FAERS Safety Report 10039355 (Version 2)
Quarter: 2014Q2

REPORT INFORMATION
  Report Type: Spontaneous
  Country: US (occurrence: None)
  Receive Date: 20140318
  Receipt Date: 20140617
  Transmission Date: 20141212
  Serious: No
  Sender: FDA-Public Use
  Company Number: 2014CT000001

PATIENT
  Age: 48 Year
  Sex: Female
  Weight: 95.26 kg

DRUGS (2)
  1. KORLYM [Suspect]
     Indication: CUSHING^S SYNDROME
     Route: 048
     Dates: start: 20131122
  2. INSULIN [Concomitant]

REACTIONS (16)
  - Blood pressure increased [None]
  - Blood glucose increased [None]
  - Breast tenderness [None]
  - Adnexa uteri pain [None]
  - Nausea [None]
  - Decreased appetite [None]
  - Fatigue [None]
  - Headache [None]
  - Sinusitis [None]
  - Chills [None]
  - Hot flush [None]
  - Dizziness [None]
  - Oropharyngeal pain [None]
  - Ear pain [None]
  - Weight decreased [None]
  - Glycosylated haemoglobin increased [None]
